FAERS Safety Report 11543154 (Version 1)
Quarter: 2015Q3

REPORT INFORMATION
  Report Type: Spontaneous
  Country: ES (occurrence: ES)
  Receive Date: 20150923
  Receipt Date: 20150923
  Transmission Date: 20151125
  Serious: Yes (Other)
  Sender: FDA-Public Use
  Company Number: ES-ASTRAZENECA-2015SE53568

PATIENT
  Age: 24884 Day
  Sex: Male
  Weight: 95 kg

DRUGS (13)
  1. ESOMEPRAZOLE [Concomitant]
     Active Substance: ESOMEPRAZOLE
     Dosage: 40
  2. ZAFIRLUKAST. [Concomitant]
     Active Substance: ZAFIRLUKAST
  3. DULOXETINE. [Concomitant]
     Active Substance: DULOXETINE
     Dosage: 30
  4. IPRATROPIUM BROMIDE. [Concomitant]
     Active Substance: IPRATROPIUM BROMIDE
  5. REPAGLINIDE. [Concomitant]
     Active Substance: REPAGLINIDE
     Dosage: 2 MG
  6. PREDNISONE. [Concomitant]
     Active Substance: PREDNISONE
  7. LANTUS [Concomitant]
     Active Substance: INSULIN GLARGINE
     Dosage: 24 UI
  8. PITAVASTATIN [Concomitant]
     Active Substance: PITAVASTATIN
     Dosage: 4 MG
  9. TAMSULOSIN [Concomitant]
     Active Substance: TAMSULOSIN
     Dosage: 0.4
  10. FORXIGA [Suspect]
     Active Substance: DAPAGLIFLOZIN
     Indication: DIABETES MELLITUS
     Route: 048
     Dates: start: 20141101, end: 20141124
  11. CALCIO+VIT D [Concomitant]
  12. BUDESONIDE. [Concomitant]
     Active Substance: BUDESONIDE
  13. CLORAZEPATE DIPOTASSIUM. [Concomitant]
     Active Substance: CLORAZEPATE DIPOTASSIUM
     Dosage: 15 MG

REACTIONS (3)
  - Rash [Recovered/Resolved]
  - Asthma [Recovered/Resolved]
  - Urticaria [Unknown]

NARRATIVE: CASE EVENT DATE: 20141111
